FAERS Safety Report 4915581-9 (Version None)
Quarter: 2006Q1

REPORT INFORMATION
  Report Type: 
  Country: None (occurrence: None)
  Receive Date: 20060217
  Receipt Date: 20051017
  Transmission Date: 20060701
  Serious: Yes (Hospitalization)
  Sender: FDA-Public Use
  Company Number: US-MERCK-0510USA07677

PATIENT
  Age: 56 Year
  Sex: Male

DRUGS (3)
  1. VIOXX [Suspect]
     Indication: OSTEOARTHRITIS
     Route: 048
     Dates: start: 20000101, end: 20020528
  2. LOTENSIN [Concomitant]
     Route: 065
  3. ULTRAM [Concomitant]
     Indication: OSTEOARTHRITIS
     Route: 065

REACTIONS (12)
  - ACUTE MYOCARDIAL INFARCTION [None]
  - ALCOHOL WITHDRAWAL SYNDROME [None]
  - ANAEMIA POSTOPERATIVE [None]
  - AORTIC DISSECTION [None]
  - AORTIC VALVE INCOMPETENCE [None]
  - ATELECTASIS [None]
  - CHRONIC OBSTRUCTIVE PULMONARY DISEASE [None]
  - DELIRIUM TREMENS [None]
  - ENCEPHALOPATHY [None]
  - LEUKOCYTOSIS [None]
  - RENAL FAILURE [None]
  - THROMBOSIS [None]
